FAERS Safety Report 4546577-7 (Version None)
Quarter: 2005Q1

REPORT INFORMATION
  Report Type: 
  Country: None (occurrence: None)
  Receive Date: 20050103
  Receipt Date: 20041216
  Transmission Date: 20050727
  Serious: Yes (Hospitalization)
  Sender: FDA-Public Use
  Company Number: FR_040904790

PATIENT
  Sex: Male

DRUGS (7)
  1. PROZAC [Suspect]
     Dates: end: 20031122
  2. MEPRONIZINE [Concomitant]
  3. VALPROATE SODIUM [Concomitant]
  4. TERCIAN (CYAMEMAZINE) [Concomitant]
  5. XANAX (ALPRAZOLAM DUM) [Concomitant]
  6. IXEL (MILNACIPRAN) [Concomitant]
  7. OXAZEPAM [Concomitant]

REACTIONS (12)
  - APGAR SCORE LOW [None]
  - CARDIAC DISORDER [None]
  - DEFORMITY THORAX [None]
  - DRUG EXPOSURE DURING PREGNANCY [None]
  - FOETAL GROWTH RETARDATION [None]
  - HYPERTONIA NEONATAL [None]
  - HYPOTONIA NEONATAL [None]
  - IRRITABILITY [None]
  - NEONATAL APNOEIC ATTACK [None]
  - OLIGOHYDRAMNIOS [None]
  - PATENT DUCTUS ARTERIOSUS [None]
  - TRICUSPID VALVE INCOMPETENCE [None]
